FAERS Safety Report 16938429 (Version 1)
Quarter: 2019Q4

REPORT INFORMATION
  Report Type: Report from Study
  Country: US (occurrence: US)
  Receive Date: 20191019
  Receipt Date: 20191019
  Transmission Date: 20200122
  Serious: Yes (Other)
  Sender: FDA-Public Use
  Company Number: US-TAKEDA-2018TUS030955

PATIENT
  Sex: Female
  Weight: 58 kg

DRUGS (1)
  1. BRIGATINIB [Suspect]
     Active Substance: BRIGATINIB
     Indication: NON-SMALL CELL LUNG CANCER
     Dosage: UNK
     Route: 048

REACTIONS (15)
  - Dry mouth [Recovered/Resolved]
  - Metastases to central nervous system [Unknown]
  - Constipation [Unknown]
  - Dyspnoea exertional [Unknown]
  - Somnolence [Recovered/Resolved]
  - Sleep disorder [Recovered/Resolved]
  - Cough [Recovered/Resolved]
  - Vomiting [Recovered/Resolved]
  - Non-small cell lung cancer metastatic [Unknown]
  - Pain [Recovered/Resolved]
  - Emotional distress [Unknown]
  - Hypoaesthesia [Recovered/Resolved]
  - Memory impairment [Unknown]
  - Fatigue [Unknown]
  - Dyspnoea [Recovered/Resolved]
